FAERS Safety Report 7290657-2 (Version None)
Quarter: 2011Q1

REPORT INFORMATION
  Report Type: 
  Country: None (occurrence: None)
  Receive Date: 20110214
  Receipt Date: 20110208
  Transmission Date: 20110831
  Serious: Yes (Other)
  Sender: FDA-Public Use
  Company Number: NO-B.I. PHARMACEUTICALS,INC./RIDGEFIELD-2011-DE-00985GD

PATIENT

DRUGS (3)
  1. DIPYRIDAMOLE [Suspect]
  2. WARFARIN [Suspect]
  3. ACETYLSALICYLIC ACID [Suspect]

REACTIONS (2)
  - DRUG INTERACTION [None]
  - HAEMORRHAGE [None]
